FAERS Safety Report 8445438 (Version 3)
Quarter: 2013Q4

REPORT INFORMATION
  Report Type: Spontaneous
  Country: FR (occurrence: FR)
  Receive Date: 20120307
  Receipt Date: 20131106
  Transmission Date: 20140711
  Serious: Yes (Life-Threatening, Hospitalization)
  Sender: FDA-Public Use
  Company Number: FR-009507513-1203FRA00008

PATIENT
  Age: 60 Year
  Sex: Female
  Weight: 90 kg

DRUGS (9)
  1. JANUVIA [Suspect]
     Dosage: 100 MG, QD
     Route: 048
     Dates: end: 20120107
  2. METFORMIN [Suspect]
     Indication: TYPE 2 DIABETES MELLITUS
     Dosage: 1 G, QID
     Route: 048
     Dates: end: 20120107
  3. NISIS [Suspect]
     Dosage: 160 MG, QD
     Route: 048
     Dates: end: 20120107
  4. LASILIX [Suspect]
     Dosage: 40 MG, QD
     Route: 048
     Dates: start: 20120102, end: 20120107
  5. LASILIX [Suspect]
     Dosage: 20 MG, QD
     Route: 048
     Dates: end: 20120101
  6. DIFFU-K [Suspect]
     Dosage: 1 DF, QD
     Route: 048
     Dates: end: 20120107
  7. LERCAN [Suspect]
     Dosage: 20 MG, QD
     Route: 048
     Dates: end: 20120107
  8. VOLTAREN [Suspect]
     Dosage: 75 MG, QD
     Route: 048
     Dates: end: 20120107
  9. CO-RENITEC [Suspect]
     Indication: HYPERTENSION
     Dosage: 20MG-12.5
     Route: 048
     Dates: end: 20120107

REACTIONS (6)
  - Cardio-respiratory arrest [Recovered/Resolved]
  - Lactic acidosis [Recovered/Resolved]
  - Hyperkalaemia [Recovered/Resolved]
  - Renal failure acute [Recovering/Resolving]
  - Hypoglycaemia [Recovered/Resolved]
  - Coma [Recovered/Resolved]
